FAERS Safety Report 25141754 (Version 1)
Quarter: 2025Q1

REPORT INFORMATION
  Report Type: Spontaneous
  Country: US (occurrence: US)
  Receive Date: 20250331
  Receipt Date: 20250331
  Transmission Date: 20250408
  Serious: Yes (Other)
  Sender: AMGEN
  Company Number: US-AMGEN-USASP2025059268

PATIENT
  Age: 74 Year
  Sex: Female

DRUGS (3)
  1. BEVACIZUMAB [Suspect]
     Active Substance: BEVACIZUMAB
     Indication: Ovarian cancer stage III
     Route: 065
     Dates: start: 2023
  2. CARBOPLATIN [Concomitant]
     Active Substance: CARBOPLATIN
     Dates: start: 2023
  3. DOXORUBICIN [Concomitant]
     Active Substance: DOXORUBICIN
     Dates: start: 2023

REACTIONS (1)
  - Hypertension [Unknown]
